FAERS Safety Report 15349825 (Version 2)
Quarter: 2018Q3

REPORT INFORMATION
  Report Type: Spontaneous
  Country: SA (occurrence: SA)
  Receive Date: 20180904
  Receipt Date: 20180911
  Transmission Date: 20181010
  Serious: Yes (Hospitalization, Other)
  Sender: FDA-Public Use
  Company Number: PHHY2018SA086396

PATIENT
  Age: 23 Year
  Sex: Female

DRUGS (1)
  1. METFORMIN [Suspect]
     Active Substance: METFORMIN HYDROCHLORIDE
     Indication: OVERWEIGHT
     Dosage: 500 MG, UNK (INGESTED AROUND 60 TABLETS) 30 GRAMS TOTAL
     Route: 048

REACTIONS (8)
  - Hypoglycaemia [Recovering/Resolving]
  - Intentional overdose [Unknown]
  - Intentional product misuse [Unknown]
  - Suicide attempt [Unknown]
  - Toxicity to various agents [Recovering/Resolving]
  - Product use in unapproved indication [Unknown]
  - Lactic acidosis [Recovering/Resolving]
  - Blood pressure decreased [Recovering/Resolving]
